FAERS Safety Report 13110918 (Version 1)
Quarter: 2017Q1

REPORT INFORMATION
  Report Type: Spontaneous
  Country: SE (occurrence: SE)
  Receive Date: 20170112
  Receipt Date: 20170112
  Transmission Date: 20170428
  Serious: Yes (Hospitalization, Other)
  Sender: FDA-Public Use
  Company Number: SE-TEVA-727085ISR

PATIENT
  Age: 43 Year
  Sex: Male

DRUGS (2)
  1. DOXORUBICIN [Suspect]
     Active Substance: DOXORUBICIN
  2. CISPLATIN. [Suspect]
     Active Substance: CISPLATIN

REACTIONS (1)
  - Acute kidney injury [Not Recovered/Not Resolved]
